FAERS Safety Report 6766968-3 (Version None)
Quarter: 2010Q2

REPORT INFORMATION
  Report Type: 
  Country: None (occurrence: None)
  Receive Date: 20100611
  Receipt Date: 20100603
  Transmission Date: 20101027
  Serious: Yes (Other)
  Sender: FDA-Public Use
  Company Number: US-AMGEN-KDL414190

PATIENT
  Sex: Female
  Weight: 100.8 kg

DRUGS (6)
  1. ENBREL [Suspect]
     Indication: DRUG USE FOR UNKNOWN INDICATION
     Route: 058
     Dates: start: 20091125
  2. LORTAB [Concomitant]
  3. SLEEPING MEDICATION NOS [Concomitant]
  4. ZOLOFT [Concomitant]
  5. VITAMIN D [Concomitant]
  6. ENTOCORT EC [Concomitant]

REACTIONS (7)
  - ANXIETY [None]
  - CONVULSION [None]
  - DIZZINESS [None]
  - FATIGUE [None]
  - FIBROMYALGIA [None]
  - PRESYNCOPE [None]
  - SYNCOPE [None]
